FAERS Safety Report 5624985-0 (Version None)
Quarter: 2008Q1

REPORT INFORMATION
  Report Type: 
  Country: None (occurrence: None)
  Receive Date: 20080213
  Receipt Date: 20080201
  Transmission Date: 20080703
  Serious: Yes (Life-Threatening, Hospitalization, Other)
  Sender: FDA-Public Use
  Company Number: US-PFIZER INC-2007085275

PATIENT
  Sex: Female

DRUGS (3)
  1. LYRICA [Suspect]
     Indication: DIABETIC NEUROPATHY
  2. LYRICA [Suspect]
     Indication: BURNING SENSATION
  3. DRUG, UNSPECIFIED [Concomitant]

REACTIONS (9)
  - ATELECTASIS [None]
  - CARDIAC FAILURE [None]
  - CEREBROVASCULAR ACCIDENT [None]
  - HYPERTENSION [None]
  - HYPOXIA [None]
  - OEDEMA [None]
  - PNEUMONIA [None]
  - RESPIRATORY DISORDER [None]
  - THROMBOTIC CEREBRAL INFARCTION [None]
